FAERS Safety Report 17490191 (Version 1)
Quarter: 2020Q1

REPORT INFORMATION
  Report Type: Spontaneous
  Country: US (occurrence: US)
  Receive Date: 20200303
  Receipt Date: 20200303
  Transmission Date: 20200409
  Serious: No
  Sender: FDA-Public Use
  Company Number: US-AKORN PHARMACEUTICALS-2019AKN01938

PATIENT
  Age: 24 Year
  Sex: Male
  Weight: 98.41 kg

DRUGS (1)
  1. MYORISAN [Suspect]
     Active Substance: ISOTRETINOIN
     Indication: ACNE
     Dosage: 40 MG, 2X/DAY
     Route: 048
     Dates: start: 20190313, end: 201908

REACTIONS (4)
  - Lip dry [Unknown]
  - Dry skin [Unknown]
  - Chapped lips [Unknown]
  - Lip haemorrhage [Unknown]

NARRATIVE: CASE EVENT DATE: 201904
